FAERS Safety Report 13452150 (Version 1)
Quarter: 2017Q2

REPORT INFORMATION
  Report Type: Report from Study
  Country: DE (occurrence: DE)
  Receive Date: 20170418
  Receipt Date: 20170418
  Transmission Date: 20170830
  Serious: Yes (Hospitalization)
  Sender: FDA-Public Use
  Company Number: DE-ALKABELLO-2015AA001303

PATIENT
  Age: 59 Year
  Sex: Male
  Weight: 84 kg

DRUGS (3)
  1. PANTOPRAZOLE [Concomitant]
     Active Substance: PANTOPRAZOLE
     Route: 048
     Dates: start: 2014
  2. GRAZAX [Suspect]
     Active Substance: PHLEUM PRATENSE POLLEN
     Dosage: DOSE UNIT:75000 SQ-T
     Route: 060
     Dates: start: 20140220
  3. RAMIPRIL. [Concomitant]
     Active Substance: RAMIPRIL
     Indication: HYPERTENSION
     Route: 048
     Dates: start: 2012

REACTIONS (2)
  - Impaired healing [Recovered/Resolved]
  - Sinus operation [Recovered/Resolved]

NARRATIVE: CASE EVENT DATE: 20150701
